FAERS Safety Report 4400184-5 (Version None)
Quarter: 2004Q3

REPORT INFORMATION
  Report Type: 
  Country: None (occurrence: None)
  Receive Date: 20040716
  Receipt Date: 20040630
  Transmission Date: 20050211
  Serious: Yes (Death, Hospitalization, Other)
  Sender: FDA-Public Use
  Company Number: USA040463754

PATIENT
  Age: 48 Year
  Sex: Male
  Weight: 68 kg

DRUGS (1)
  1. ZYPREXA [Suspect]
     Indication: PSYCHOTIC DISORDER
     Dosage: 20 MG DAY
     Dates: start: 20010101

REACTIONS (23)
  - ABNORMAL BEHAVIOUR [None]
  - ANTIPSYCHOTIC DRUG LEVEL ABOVE THERAPEUTIC [None]
  - AORTIC ATHEROSCLEROSIS [None]
  - APNOEA [None]
  - ARRHYTHMOGENIC RIGHT VENTRICULAR DYSPLASIA [None]
  - COMA [None]
  - CORONARY ARTERY ATHEROSCLEROSIS [None]
  - FATIGUE [None]
  - HEPATIC CONGESTION [None]
  - INCONTINENCE [None]
  - MAJOR DEPRESSION [None]
  - MARKEDLY REDUCED DIETARY INTAKE [None]
  - MENTAL IMPAIRMENT [None]
  - PERICARDIAL EFFUSION [None]
  - PULMONARY OEDEMA [None]
  - PULMONARY VASCULAR DISORDER [None]
  - PULSE ABSENT [None]
  - RASH [None]
  - REFUSAL OF TREATMENT BY PATIENT [None]
  - RENAL DISORDER [None]
  - URETHRAL HAEMORRHAGE [None]
  - URETHRAL INJURY [None]
  - WEIGHT DECREASED [None]
